FAERS Safety Report 26150123 (Version 1)
Quarter: 2025Q4

REPORT INFORMATION
  Report Type: Other
  Country: GB (occurrence: GB)
  Receive Date: 20251212
  Receipt Date: 20251212
  Transmission Date: 20260117
  Serious: Yes (Other)
  Sender: MACLEODS
  Company Number: None

PATIENT

DRUGS (1)
  1. RIVAROXABAN [Suspect]
     Active Substance: RIVAROXABAN
     Indication: Thrombosis prophylaxis
     Dates: start: 20251002

REACTIONS (1)
  - Alopecia [Unknown]

NARRATIVE: CASE EVENT DATE: 20251102
